FAERS Safety Report 5611772-2 (Version None)
Quarter: 2008Q1

REPORT INFORMATION
  Report Type: 
  Country: None (occurrence: None)
  Receive Date: 20080128
  Receipt Date: 20080115
  Transmission Date: 20080703
  Serious: Yes (Death, Hospitalization, Other)
  Sender: FDA-Public Use
  Company Number: 100#08#2008-00347

PATIENT
  Age: 39 Year
  Sex: Male

DRUGS (2)
  1. DICLOFENAC (DICLOFENAC) [Suspect]
     Indication: GOUT
     Dosage: 400 MG AT ONCE
  2. COLCHICUM JTL LIQ [Suspect]
     Indication: GOUT
     Dosage: 18 -  24 MG AT ONCE

REACTIONS (12)
  - ABDOMINAL PAIN [None]
  - CARDIOMYOPATHY [None]
  - DIARRHOEA [None]
  - DRUG TOXICITY [None]
  - EPISTAXIS [None]
  - GENERAL PHYSICAL HEALTH DETERIORATION [None]
  - HYPOTENSION [None]
  - LUNG INJURY [None]
  - MULTIPLE DRUG OVERDOSE ACCIDENTAL [None]
  - RENAL FAILURE [None]
  - VASCULAR RESISTANCE SYSTEMIC DECREASED [None]
  - VOMITING [None]
